FAERS Safety Report 6476936-7 (Version None)
Quarter: 2009Q4

REPORT INFORMATION
  Report Type: 
  Country: None (occurrence: None)
  Receive Date: 20091203
  Receipt Date: 20091203
  Transmission Date: 20100525
  Serious: Yes (Other)
  Sender: FDA-Public Use
  Company Number: None

PATIENT
  Sex: Female
  Weight: 56.6996 kg

DRUGS (1)
  1. BONIVA [Suspect]
     Indication: OSTEOPENIA
     Dosage: 150 MG 1 PER MONTH PO
     Route: 048
     Dates: start: 20070101, end: 20081001

REACTIONS (5)
  - DYSPEPSIA [None]
  - LYMPHADENOPATHY [None]
  - PAIN IN EXTREMITY [None]
  - PHARYNGEAL DISORDER [None]
  - THROAT TIGHTNESS [None]
